FAERS Safety Report 20847380 (Version 2)
Quarter: 2022Q2

REPORT INFORMATION
  Report Type: Spontaneous
  Country: US (occurrence: US)
  Receive Date: 20220519
  Receipt Date: 20220621
  Transmission Date: 20220721
  Serious: No
  Sender: FDA-Public Use
  Company Number: US-BRISTOL-MYERS SQUIBB COMPANY-2022-036499

PATIENT
  Age: 87 Year
  Sex: Male

DRUGS (8)
  1. REVLIMID [Suspect]
     Active Substance: LENALIDOMIDE
     Indication: Plasma cell myeloma
     Route: 048
     Dates: start: 20220409
  2. REVLIMID [Suspect]
     Active Substance: LENALIDOMIDE
     Dosage: TAKE 1 CAPSULE BY MOUTH DAILY ON DAYS 1-21 EVERY 28 DAYS
     Route: 048
     Dates: start: 20220201
  3. ANTIFUNGAL CRE 1% [Concomitant]
     Indication: Product used for unknown indication
  4. COLACE CAP 100 MG [Concomitant]
     Indication: Product used for unknown indication
  5. DEXAMETHASON TAB 0.75 MG [Concomitant]
     Indication: Product used for unknown indication
  6. LISINOPRIL [Concomitant]
     Active Substance: LISINOPRIL
     Indication: Product used for unknown indication
  7. MAALOX ADV CHW 1000-60 [Concomitant]
     Indication: Product used for unknown indication
  8. TUMS E-X CHW 750 MG [Concomitant]
     Indication: Product used for unknown indication

REACTIONS (4)
  - Dizziness [Unknown]
  - Productive cough [Unknown]
  - Constipation [Unknown]
  - Product dose omission issue [Unknown]
